FAERS Safety Report 5962635-4 (Version None)
Quarter: 2008Q4

REPORT INFORMATION
  Report Type: 
  Country: None (occurrence: None)
  Receive Date: 20081121
  Receipt Date: 20081118
  Transmission Date: 20090506
  Serious: Yes (Death, Hospitalization, Other)
  Sender: FDA-Public Use
  Company Number: PHHY2008BR28849

PATIENT
  Age: 86 Year
  Sex: Female

DRUGS (1)
  1. EXELON [Suspect]
     Indication: DEMENTIA ALZHEIMER'S TYPE
     Dosage: UNK
     Route: 048
     Dates: start: 20020101, end: 20081103

REACTIONS (9)
  - ASTHENIA [None]
  - CARDIO-RESPIRATORY ARREST [None]
  - DEMENTIA ALZHEIMER'S TYPE [None]
  - EATING DISORDER [None]
  - GENERAL PHYSICAL HEALTH DETERIORATION [None]
  - INCISION SITE COMPLICATION [None]
  - NEOPLASM MALIGNANT [None]
  - SURGERY [None]
  - VAGINAL CANCER [None]
